FAERS Safety Report 7270732-9 (Version None)
Quarter: 2011Q1

REPORT INFORMATION
  Report Type: 
  Country: None (occurrence: None)
  Receive Date: 20110202
  Receipt Date: 20110125
  Transmission Date: 20110831
  Serious: Yes (Hospitalization)
  Sender: FDA-Public Use
  Company Number: B0697474A

PATIENT
  Sex: Female
  Weight: 64.8 kg

DRUGS (2)
  1. LAPATINIB [Suspect]
     Indication: BREAST CANCER
     Route: 065
     Dates: start: 20100831
  2. XELODA [Concomitant]
     Dates: start: 20100831

REACTIONS (7)
  - LUNG INFILTRATION [None]
  - ACUTE RESPIRATORY FAILURE [None]
  - PYREXIA [None]
  - PNEUMONITIS [None]
  - ACUTE RESPIRATORY DISTRESS SYNDROME [None]
  - DYSPNOEA [None]
  - INFECTION [None]
